FAERS Safety Report 5427784-8 (Version None)
Quarter: 2007Q3

REPORT INFORMATION
  Report Type: 
  Country: None (occurrence: None)
  Receive Date: 20070828
  Receipt Date: 20070821
  Transmission Date: 20080115
  Serious: Yes (Other)
  Sender: FDA-Public Use
  Company Number: US-ELI_LILLY_AND_COMPANY-US200708004499

PATIENT
  Age: 60 Year
  Sex: Female
  Weight: 108.84 kg

DRUGS (6)
  1. OLANZAPINE [Suspect]
     Dosage: UNK, UNK
     Route: 048
     Dates: start: 19980101
  2. NIFEDIPINE [Concomitant]
  3. NAPROSYN [Concomitant]
  4. GEMFIBROZIL [Concomitant]
  5. METOCLOPRAMIDE [Concomitant]
  6. COREG [Concomitant]

REACTIONS (10)
  - ABDOMINAL HERNIA [None]
  - CARDIAC DISORDER [None]
  - COLON CANCER [None]
  - INCREASED APPETITE [None]
  - INTESTINAL FUNCTIONAL DISORDER [None]
  - MUSCULOSKELETAL DISCOMFORT [None]
  - PANCREATIC DISORDER [None]
  - VOMITING [None]
  - WEIGHT DECREASED [None]
  - WEIGHT INCREASED [None]
